FAERS Safety Report 8421573-8 (Version None)
Quarter: 2012Q2

REPORT INFORMATION
  Report Type: 
  Country: None (occurrence: None)
  Receive Date: 20120605
  Receipt Date: 20120605
  Transmission Date: 20120825
  Serious: No
  Sender: FDA-Public Use
  Company Number: None

PATIENT
  Sex: Female
  Weight: 40.8237 kg

DRUGS (1)
  1. LISINOPRIL [Suspect]
     Indication: HYPERTENSION
     Dosage: 5 MG 1 X DAILY MOUTH
     Route: 048
     Dates: start: 20120413, end: 20120519

REACTIONS (9)
  - CRYING [None]
  - RESTLESSNESS [None]
  - MOOD ALTERED [None]
  - NEGATIVISM [None]
  - DEPRESSION [None]
  - FEELING OF DESPAIR [None]
  - EUPHORIC MOOD [None]
  - INSOMNIA [None]
  - SUICIDAL IDEATION [None]
